FAERS Safety Report 7352226-5 (Version None)
Quarter: 2011Q1

REPORT INFORMATION
  Report Type: 
  Country: None (occurrence: None)
  Receive Date: 20110304
  Receipt Date: 20110219
  Transmission Date: 20110831
  Serious: Yes (Hospitalization)
  Sender: FDA-Public Use
  Company Number: 2011-0490

PATIENT
  Sex: Female

DRUGS (2)
  1. ABOBOTULINUMTOXINA [Suspect]
  2. DYSPORT [Suspect]
     Indication: SKIN WRINKLING
     Dosage: 50 UNITEDS (50 UNITS,SINGLE CYCLE),

REACTIONS (4)
  - ORAL PAIN [None]
  - BURNING SENSATION [None]
  - LOCAL SWELLING [None]
  - SWELLING FACE [None]
